FAERS Safety Report 7122133-1 (Version None)
Quarter: 2010Q4

REPORT INFORMATION
  Report Type: 
  Country: None (occurrence: None)
  Receive Date: 20101124
  Receipt Date: 20101111
  Transmission Date: 20110411
  Serious: Yes (Hospitalization, Other)
  Sender: FDA-Public Use
  Company Number: US-ACTELION-A-US2009-23260

PATIENT

DRUGS (7)
  1. ZAVESCA [Suspect]
     Indication: GAUCHER'S DISEASE
     Dosage: 100 MG, TID
     Route: 048
     Dates: start: 20050601, end: 20081212
  2. ZAVESCA [Suspect]
     Dosage: 100 MG, TID
     Route: 048
     Dates: start: 20090104
  3. LEXAPRO [Concomitant]
  4. MOTRIN [Concomitant]
  5. TYLENOL (CAPLET) [Concomitant]
  6. VITAMIN D [Concomitant]
  7. AMBIEN [Concomitant]

REACTIONS (12)
  - ABDOMINAL DISTENSION [None]
  - ASTHENIA [None]
  - COLITIS ISCHAEMIC [None]
  - CONSTIPATION [None]
  - CROHN'S DISEASE [None]
  - DIARRHOEA [None]
  - FATIGUE [None]
  - FIBROMYALGIA [None]
  - FLATULENCE [None]
  - IRRITABLE BOWEL SYNDROME [None]
  - OSTEOPENIA [None]
  - PLANTAR FASCIITIS [None]
